FAERS Safety Report 6937503-1 (Version None)
Quarter: 2010Q3

REPORT INFORMATION
  Report Type: 
  Country: None (occurrence: None)
  Receive Date: 20100823
  Receipt Date: 20100726
  Transmission Date: 20110219
  Serious: Yes (Other)
  Sender: FDA-Public Use
  Company Number: PHEH2007US03697

PATIENT
  Sex: Female

DRUGS (45)
  1. ZOMETA [Suspect]
     Indication: BREAST CANCER
     Dosage: UNK
     Dates: start: 20050101
  2. AREDIA [Suspect]
     Indication: BREAST CANCER
     Dosage: UNK
     Dates: start: 20050101
  3. ZELNORM [Concomitant]
  4. HERCEPTIN [Concomitant]
  5. CHEMOTHERAPEUTICS NOS [Concomitant]
  6. XOPENEX [Concomitant]
  7. SPIRIVA [Concomitant]
  8. K-DUR [Concomitant]
  9. ATROVENT [Concomitant]
  10. LASIX [Concomitant]
  11. WELLBUTRIN [Concomitant]
  12. LABETALOL HCL [Concomitant]
  13. NEURONTIN [Concomitant]
  14. THEOPHYLLINE [Concomitant]
  15. ALBUTEROL [Concomitant]
  16. PENICILLIN [Concomitant]
  17. OXYCONTIN [Concomitant]
     Dosage: 40 MG, BID
  18. ROXICODONE [Concomitant]
  19. BACLOFEN [Concomitant]
  20. PREDNISONE [Concomitant]
  21. OMNICEF [Concomitant]
  22. CIPRO [Concomitant]
  23. ZYRTEC [Concomitant]
  24. EFFEXOR [Concomitant]
  25. ATIVAN [Concomitant]
  26. KETEK [Concomitant]
  27. NORMODYNE [Concomitant]
  28. MIRALAX [Concomitant]
  29. TORADOL [Concomitant]
     Dosage: 60 MG, ONCE/SINGLE
     Route: 030
  30. BEXTRA [Concomitant]
  31. FLEXERIL [Concomitant]
     Dosage: UNK
  32. DYAZIDE [Concomitant]
  33. DEXAMETHASONE [Concomitant]
  34. PREVACID [Concomitant]
     Dosage: UNK
  35. CHLORPHEDRINE SR [Concomitant]
  36. REGLAN [Concomitant]
     Dosage: BEFORE MEALS
  37. LEVAQUIN [Concomitant]
     Dosage: 500 MG, UNK
  38. SKELAXIN [Concomitant]
  39. IBUPROFEN [Concomitant]
  40. PROTON PUMP INHIBITORS [Concomitant]
  41. VERSAPEN [Concomitant]
  42. ACETAMINOPHEN [Concomitant]
  43. HYDROCODONE BITARTRATE [Concomitant]
  44. TIOTROPIUM BROMIDE [Concomitant]
  45. POTASSIUM CHLORIDE [Concomitant]

REACTIONS (16)
  - ANAEMIA [None]
  - ANXIETY [None]
  - BONE DISORDER [None]
  - BONE GRAFT [None]
  - CONVULSION [None]
  - DECREASED INTEREST [None]
  - FRACTURE NONUNION [None]
  - GENERAL PHYSICAL HEALTH DETERIORATION [None]
  - INJURY [None]
  - OEDEMA PERIPHERAL [None]
  - OPEN REDUCTION OF FRACTURE [None]
  - OSTEOMYELITIS [None]
  - OSTEONECROSIS OF JAW [None]
  - PAIN [None]
  - POOR DENTAL CONDITION [None]
  - POSTMENOPAUSE [None]
